FAERS Safety Report 17185735 (Version 2)
Quarter: 2020Q1

REPORT INFORMATION
  Report Type: Spontaneous
  Country: TR (occurrence: TR)
  Receive Date: 20191220
  Receipt Date: 20200114
  Transmission Date: 20200409
  Serious: Yes (Death)
  Sender: FDA-Public Use
  Company Number: TR-PFIZER INC-2019546900

PATIENT
  Age: 162 Month
  Sex: Male

DRUGS (15)
  1. VORICONAZOLE. [Suspect]
     Active Substance: VORICONAZOLE
     Indication: BRONCHOPULMONARY ASPERGILLOSIS
  2. PREDNISOLONE. [Concomitant]
     Active Substance: PREDNISOLONE
     Indication: APLASTIC ANAEMIA
     Dosage: 2 MG/KG, DAILY (FOR 8 DAYS)
  3. PREDNISOLONE. [Concomitant]
     Active Substance: PREDNISOLONE
     Indication: HEPATITIS A
     Dosage: UNK (THEN DOSE TAPERED AND STOPPED AT THE 28TH DAY)
  4. CASPOFUNGIN [Suspect]
     Active Substance: CASPOFUNGIN
     Indication: SALVAGE THERAPY
     Dosage: UNK
  5. CYCLOSPORINE. [Concomitant]
     Active Substance: CYCLOSPORINE
     Indication: APLASTIC ANAEMIA
     Dosage: 5-10 MG/KG, DAILY (FOR 180 DAYS)
  6. CYCLOSPORINE. [Concomitant]
     Active Substance: CYCLOSPORINE
     Indication: HEPATITIS A
  7. CASPOFUNGIN [Suspect]
     Active Substance: CASPOFUNGIN
     Indication: ANTIFUNGAL TREATMENT
  8. CASPOFUNGIN [Suspect]
     Active Substance: CASPOFUNGIN
     Indication: BRONCHOPULMONARY ASPERGILLOSIS
  9. ANTITHYMOCYTE IMMUNOGLOBULIN [Concomitant]
     Active Substance: THYMOCYTE IMMUNE GLOBULIN NOS
     Indication: APLASTIC ANAEMIA
     Dosage: 2.5 MG/KG, DAILY (FOR 8 DAYS)
  10. VORICONAZOLE. [Suspect]
     Active Substance: VORICONAZOLE
     Indication: ANTIFUNGAL TREATMENT
     Dosage: UNK
  11. AMPHOTERICIN B, LIPOSOME [Concomitant]
     Active Substance: AMPHOTERICIN B
     Dosage: UNK, DAILY (DOSES OF UP TO 5 MG/KG)
  12. ANTITHYMOCYTE IMMUNOGLOBULIN [Concomitant]
     Active Substance: THYMOCYTE IMMUNE GLOBULIN NOS
     Indication: HEPATITIS A
  13. GRANULOCYTE COLONY STIMULATING FACTOR [Concomitant]
     Active Substance: GRANULOCYTE COLONY-STIMULATING FACTOR NOS
     Indication: APLASTIC ANAEMIA
     Dosage: 5 UG/KG, DAILY (STARTED AT THE 5TH DAY OF ATG)
  14. GRANULOCYTE COLONY STIMULATING FACTOR [Concomitant]
     Active Substance: GRANULOCYTE COLONY-STIMULATING FACTOR NOS
     Indication: HEPATITIS A
     Dosage: 5 UG/KG, DAILY (FOR 40 DAYS; 14 WEEKS AFTER THE LAST ATG TREATMENT)
  15. CYCLOPHOSPHAMIDE. [Concomitant]
     Active Substance: CYCLOPHOSPHAMIDE
     Dosage: 50 MG/KG, DAILY (FOR 4 DAYS, HIGH DOSE)

REACTIONS (2)
  - Drug ineffective [Fatal]
  - Mucormycosis [Fatal]
